FAERS Safety Report 5280966-0 (Version None)
Quarter: 2007Q1

REPORT INFORMATION
  Report Type: 
  Country: None (occurrence: None)
  Receive Date: 20061229
  Receipt Date: 20060921
  Transmission Date: 20070707
  Serious: Yes (Other)
  Sender: FDA-Public Use
  Company Number: 2006UW18475

PATIENT
  Age: 77 Year
  Sex: Female
  Weight: 70.306 kg

DRUGS (13)
  1. CRESTOR [Suspect]
     Indication: BLOOD CHOLESTEROL INCREASED
     Dosage: 10 MG PO
     Route: 048
     Dates: start: 20060912
  2. NEURONTIN [Concomitant]
  3. SKELAXIN [Concomitant]
  4. NASACOR [Concomitant]
  5. LANTUS [Concomitant]
  6. MAXAIR [Concomitant]
  7. LASIX [Concomitant]
  8. ENABLEX [Concomitant]
  9. GLIMEPIRIDE [Concomitant]
  10. THYROID TAB [Concomitant]
  11. PROTONIX [Concomitant]
  12. ALLOPURINOL [Concomitant]
  13. AVAPRO [Concomitant]

REACTIONS (1)
  - DRY MOUTH [None]
